FAERS Safety Report 5199470-3 (Version None)
Quarter: 2006Q4

REPORT INFORMATION
  Report Type: 
  Country: None (occurrence: None)
  Receive Date: 20061229
  Receipt Date: 20061211
  Transmission Date: 20070319
  Serious: Yes (Death)
  Sender: FDA-Public Use
  Company Number: US200612001823

PATIENT
  Age: 55 Year
  Sex: Male

DRUGS (3)
  1. CYMBALTA [Suspect]
     Indication: DEPRESSION
     Dosage: 30 MG,; 60 MG,
  2. ZYPREXA [Suspect]
     Indication: OBSESSIVE THOUGHTS
     Dosage: 2.5 MG,, 5MG
  3. XANAX [Concomitant]

REACTIONS (2)
  - COMPLETED SUICIDE [None]
  - OBSESSIVE THOUGHTS [None]
